FAERS Safety Report 13055352 (Version 1)
Quarter: 2016Q4

REPORT INFORMATION
  Report Type: Spontaneous
  Country: US (occurrence: US)
  Receive Date: 20161222
  Receipt Date: 20161222
  Transmission Date: 20170207
  Serious: Yes (Other)
  Sender: FDA-Public Use
  Company Number: US-FRESENIUS KABI-FK201610117

PATIENT
  Age: 37 Year
  Sex: Male

DRUGS (2)
  1. METHYLPREDNISOLONE (MANUFACTURER UNKNOWN) [Suspect]
     Active Substance: METHYLPREDNISOLONE
     Indication: TRANSPLANT REJECTION
     Route: 065
  2. TAC-CLOBETASOL [Concomitant]
     Indication: TRANSPLANT REJECTION
     Route: 061

REACTIONS (1)
  - Cytomegalovirus gastrointestinal infection [Recovered/Resolved]
